FAERS Safety Report 8131235-2 (Version None)
Quarter: 2012Q1

REPORT INFORMATION
  Report Type: 
  Country: None (occurrence: None)
  Receive Date: 20120210
  Receipt Date: 20120210
  Transmission Date: 20120608
  Serious: Yes (Hospitalization)
  Sender: FDA-Public Use
  Company Number: None

PATIENT
  Age: 58 Year
  Sex: Male
  Weight: 102.7 kg

DRUGS (4)
  1. AMBIEN [Concomitant]
  2. PANTIITUMUMAB [Suspect]
     Indication: COLON CANCER
     Dosage: 616.2MG
     Dates: start: 20120117
  3. BORTEZOMIB [Suspect]
     Indication: COLON CANCER
     Dosage: 3.6MG
     Dates: start: 20120131
  4. LISINOPRIL [Concomitant]

REACTIONS (2)
  - ASTHENIA [None]
  - CONFUSIONAL STATE [None]
